FAERS Safety Report 7835663-1 (Version None)
Quarter: 2011Q4

REPORT INFORMATION
  Report Type: 
  Country: None (occurrence: None)
  Receive Date: 20111024
  Receipt Date: 20111019
  Transmission Date: 20120403
  Serious: Yes (Death, Hospitalization, Other)
  Sender: FDA-Public Use
  Company Number: PHEH2006US15197

PATIENT
  Sex: Male
  Weight: 74.842 kg

DRUGS (37)
  1. GLUCOTROL XL [Concomitant]
  2. CITALOPRAM [Concomitant]
  3. PROCARDIA [Concomitant]
     Dosage: 10 MG, PRN
  4. DALMANE [Concomitant]
  5. THALIDOMIDE [Concomitant]
  6. PROCRIT                            /00909301/ [Concomitant]
  7. PREDNISONE [Concomitant]
  8. CHEMOTHERAPEUTICS NOS [Concomitant]
  9. VERAPAMIL [Concomitant]
     Dosage: 80 MG, TID
  10. TIMOPTIC [Concomitant]
  11. AUGMENTIN '125' [Concomitant]
  12. CELEXA [Concomitant]
  13. PROTONIX [Concomitant]
  14. SIMVASTATIN [Concomitant]
  15. NITROGLYCERIN [Concomitant]
  16. DEXAMETHASONE [Concomitant]
  17. ZANTAC [Concomitant]
     Dosage: 150 MG, BID
     Route: 048
  18. LOPRESSOR [Concomitant]
     Dosage: 50 MG, BID
     Route: 048
  19. GELUCIL ANTACID [Concomitant]
     Dosage: PRN
     Route: 048
  20. DECADRON [Concomitant]
  21. METOPROLOL TARTRATE [Concomitant]
  22. SENOKOT [Concomitant]
  23. LEVAQUIN [Concomitant]
  24. ZOCOR [Concomitant]
  25. LUNESTA [Concomitant]
  26. LIPITOR [Concomitant]
  27. TIMOLOL MALEATE [Concomitant]
  28. AREDIA [Suspect]
     Dosage: 90 MG, UNK
  29. RADIATION [Concomitant]
  30. ACTOS [Concomitant]
  31. MELPHALAN HYDROCHLORIDE [Concomitant]
  32. LANOXIN [Concomitant]
     Dosage: 0.25 MG, QD
     Route: 048
  33. NEULASTA [Concomitant]
  34. MULTI-VITAMINS [Concomitant]
  35. NPH INSULIN [Concomitant]
  36. GLUCOPHAGE [Concomitant]
     Dosage: 500 MG, QD
     Route: 048
  37. NIFEREX (POLYSACCHARIDE-IRON COMPLEX) [Concomitant]
     Dosage: 150 MG, BID
     Route: 048

REACTIONS (87)
  - PYREXIA [None]
  - OSTEONECROSIS OF JAW [None]
  - ANXIETY [None]
  - JAUNDICE [None]
  - DISCOMFORT [None]
  - DECUBITUS ULCER [None]
  - OSTEORADIONECROSIS [None]
  - SEPSIS [None]
  - GASTROINTESTINAL HAEMORRHAGE [None]
  - NEURITIS [None]
  - HEAD AND NECK CANCER [None]
  - ABDOMINAL DISCOMFORT [None]
  - ARTERIOSCLEROSIS [None]
  - BLOOD IMMUNOGLOBULIN G INCREASED [None]
  - PANCREATIC ENLARGEMENT [None]
  - STAPHYLOCOCCAL INFECTION [None]
  - TOOTH ABSCESS [None]
  - CARDIOMEGALY [None]
  - AORTIC VALVE INCOMPETENCE [None]
  - RENAL FAILURE [None]
  - BILIARY DILATATION [None]
  - DIVERTICULUM [None]
  - DISORIENTATION [None]
  - WEIGHT DECREASED [None]
  - DEMENTIA [None]
  - PANCREATIC MASS [None]
  - INTESTINAL PERFORATION [None]
  - CYSTITIS [None]
  - IMMUNOSUPPRESSION [None]
  - MENTAL STATUS CHANGES [None]
  - ANAEMIA [None]
  - GENERAL PHYSICAL HEALTH DETERIORATION [None]
  - GINGIVITIS [None]
  - GALLBLADDER DISORDER [None]
  - FALL [None]
  - PANCYTOPENIA [None]
  - AORTIC ARTERIOSCLEROSIS [None]
  - HEPATIC STEATOSIS [None]
  - VENTRICULAR EXTRASYSTOLES [None]
  - CONTUSION [None]
  - CONSTIPATION [None]
  - BALANCE DISORDER [None]
  - INTERVERTEBRAL DISC PROTRUSION [None]
  - MULTIPLE MYELOMA [None]
  - PANCREATITIS [None]
  - PRIMARY SEQUESTRUM [None]
  - SPINAL COMPRESSION FRACTURE [None]
  - PSYCHOTIC DISORDER [None]
  - TRANSAMINASES INCREASED [None]
  - BLOOD GLUCOSE INCREASED [None]
  - BACK PAIN [None]
  - THROMBOCYTOPENIA [None]
  - OSTEOPOROSIS [None]
  - ARTHRALGIA [None]
  - OROPHARYNGEAL PAIN [None]
  - BONE LESION [None]
  - PANCREATIC CARCINOMA [None]
  - CONFUSIONAL STATE [None]
  - DECREASED INTEREST [None]
  - LUMBAR SPINAL STENOSIS [None]
  - ECCHYMOSIS [None]
  - ABDOMINAL PAIN [None]
  - LYMPHOCYTE PERCENTAGE DECREASED [None]
  - RESPIRATORY TRACT INFECTION [None]
  - PATHOLOGICAL FRACTURE [None]
  - CHOLANGITIS [None]
  - BACTERAEMIA [None]
  - TOOTH LOSS [None]
  - MELAENA [None]
  - OEDEMA PERIPHERAL [None]
  - BILE DUCT OBSTRUCTION [None]
  - RENAL CYST [None]
  - PAIN [None]
  - BONE DISORDER [None]
  - CHOLELITHIASIS [None]
  - LOOSE TOOTH [None]
  - OSTEOMYELITIS [None]
  - EJECTION FRACTION ABNORMAL [None]
  - SCIATICA [None]
  - DYSPHAGIA [None]
  - BLEEDING TIME PROLONGED [None]
  - GASTRODUODENITIS [None]
  - GASTRITIS [None]
  - BLOOD SODIUM DECREASED [None]
  - DYSGEUSIA [None]
  - INSOMNIA [None]
  - ASTHENIA [None]
